FAERS Safety Report 9283443 (Version 2)
Quarter: 2015Q1

REPORT INFORMATION
  Report Type: Spontaneous
  Country: GB (occurrence: None)
  Receive Date: 20130506
  Receipt Date: 20150218
  Transmission Date: 20150721
  Serious: Yes (Hospitalization)
  Sender: FDA-Public Use
  Company Number: 2009SGN00093

PATIENT
  Age: 42 Year
  Sex: Male
  Weight: 86 kg

DRUGS (4)
  1. METOCLOPRAMIDE (METOCLOPRAMIDE) [Concomitant]
     Active Substance: METOCLOPRAMIDE
  2. ATOVASTATIN (ATORVASTATIN) [Concomitant]
  3. GLICLAZIDE (GLICLAZIDE) [Concomitant]
     Active Substance: GLICLAZIDE
  4. SGN-35 [Suspect]
     Active Substance: BRENTUXIMAB VEDOTIN
     Indication: ANAPLASTIC LARGE CELL LYMPHOMA T- AND NULL-CELL TYPES
     Dosage: 1.8 MG/KG, Q21D, INTRAVENOUS
     Route: 042
     Dates: start: 20091117, end: 20091117

REACTIONS (14)
  - Penis disorder [None]
  - Post procedural complication [None]
  - Graft versus host disease in skin [None]
  - Tumour lysis syndrome [None]
  - Neutropenia [None]
  - Herpes zoster [None]
  - Bone infarction [None]
  - Graft versus host disease [None]
  - Arthralgia [None]
  - Peripheral sensory neuropathy [None]
  - Pulmonary embolism [None]
  - Stem cell transplant [None]
  - Lichen sclerosus [None]
  - Musculoskeletal pain [None]

NARRATIVE: CASE EVENT DATE: 20091118
